FAERS Safety Report 7186142-9 (Version None)
Quarter: 2010Q4

REPORT INFORMATION
  Report Type: 
  Country: None (occurrence: None)
  Receive Date: 20101222
  Receipt Date: 20101217
  Transmission Date: 20110411
  Serious: Yes (Other)
  Sender: FDA-Public Use
  Company Number: ES-ABBOTT-10P-144-0692520-00

PATIENT
  Age: 58 Year
  Sex: Female

DRUGS (1)
  1. ADALIMUMAB [Suspect]
     Indication: PSORIASIS
     Route: 058
     Dates: start: 20090401

REACTIONS (8)
  - HEADACHE [None]
  - INJECTION SITE ERYTHEMA [None]
  - INJECTION SITE EXTRAVASATION [None]
  - INJECTION SITE PRURITUS [None]
  - MALAISE [None]
  - PYREXIA [None]
  - RASH MORBILLIFORM [None]
  - SKIN BURNING SENSATION [None]
